FAERS Safety Report 9637709 (Version 2)
Quarter: 2013Q4

REPORT INFORMATION
  Report Type: Spontaneous
  Country: DE (occurrence: DE)
  Receive Date: 20131022
  Receipt Date: 20131127
  Transmission Date: 20140711
  Serious: Yes (Hospitalization, Other)
  Sender: FDA-Public Use
  Company Number: DE-009507513-1310DEU008953

PATIENT
  Age: 60 Year
  Sex: Female
  Weight: 80.4 kg

DRUGS (4)
  1. VELMETIA [Suspect]
     Indication: TYPE 2 DIABETES MELLITUS
     Dosage: TOTAL DAILY DOSE: 100/2000MG.
     Route: 048
     Dates: start: 201304, end: 20130621
  2. BYDUREON [Suspect]
     Indication: TYPE 2 DIABETES MELLITUS
     Dosage: UNK, QW
     Route: 058
     Dates: start: 20130621, end: 201307
  3. AMLODIPINE [Concomitant]
     Dosage: 5 MG, BID (ALSO 1/2 BID)
     Route: 048
  4. THYRONAJOD [Concomitant]
     Dosage: 75 MG, QD
     Route: 048

REACTIONS (7)
  - Pancreatic carcinoma [Recovered/Resolved with Sequelae]
  - Gastric disorder [Unknown]
  - Constipation [Unknown]
  - Abdominal pain upper [Not Recovered/Not Resolved]
  - Abdominal pain upper [Not Recovered/Not Resolved]
  - Abdominal pain upper [Not Recovered/Not Resolved]
  - Abdominal pain upper [Not Recovered/Not Resolved]
